FAERS Safety Report 11378856 (Version 1)
Quarter: 2015Q3

REPORT INFORMATION
  Report Type: Spontaneous
  Country: US (occurrence: US)
  Receive Date: 20150811
  Receipt Date: 20150811
  Transmission Date: 20151125
  Serious: No
  Sender: FDA-Public Use
  Company Number: US-ELI_LILLY_AND_COMPANY-US200908001643

PATIENT
  Age: 53 Year
  Sex: Female

DRUGS (6)
  1. HUMULIN N [Suspect]
     Active Substance: INSULIN HUMAN
     Dosage: 20 U, EACH MORNING
     Dates: start: 1989
  2. HUMULIN N [Suspect]
     Active Substance: INSULIN HUMAN
     Dosage: 20 U, EACH MORNING
     Dates: start: 1989
  3. HUMULIN N [Suspect]
     Active Substance: INSULIN HUMAN
     Dosage: 20 U, EACH MORNING
     Dates: start: 1989
  4. HUMULIN N [Suspect]
     Active Substance: INSULIN HUMAN
     Dosage: UNK, AS NEEDED
     Dates: start: 1989
  5. HUMULIN N [Suspect]
     Active Substance: INSULIN HUMAN
     Dosage: UNK, AS NEEDED
  6. HUMULIN N [Suspect]
     Active Substance: INSULIN HUMAN
     Dosage: UNK, AS NEEDED
     Dates: start: 1989

REACTIONS (13)
  - Feeling abnormal [Unknown]
  - Malaise [Unknown]
  - Blood glucose decreased [Unknown]
  - Drug ineffective [Unknown]
  - Asthenopia [Unknown]
  - Confusional state [Unknown]
  - Anxiety [Unknown]
  - Blood glucose increased [Unknown]
  - Blood glucose increased [Unknown]
  - Poor quality drug administered [Unknown]
  - Abdominal pain upper [Unknown]
  - Headache [Unknown]
  - Crying [Unknown]

NARRATIVE: CASE EVENT DATE: 200907
